FAERS Safety Report 4868892-X (Version None)
Quarter: 2005Q4

REPORT INFORMATION
  Report Type: 
  Country: None (occurrence: None)
  Receive Date: 20051223
  Receipt Date: 20051215
  Transmission Date: 20060501
  Serious: Yes (Hospitalization)
  Sender: FDA-Public Use
  Company Number: 2005169908

PATIENT
  Age: 80 Year
  Sex: Female

DRUGS (6)
  1. ZITHROMAX [Suspect]
     Indication: BRONCHITIS
     Dosage: 500 MG, ORAL
     Route: 048
     Dates: start: 20051208, end: 20051209
  2. PRAVASTATIN [Concomitant]
  3. BLOPRESS (CANDESARTAN CILEXETIL) [Concomitant]
  4. MASHINIGAN (ALL OTHER THERAPEUTIC PRODUCTS) [Concomitant]
  5. ROCEPHIN [Concomitant]
  6. ALOTEC (ORCIPRENALINE SULFATE) [Concomitant]

REACTIONS (2)
  - BRADYCARDIA [None]
  - CONDITION AGGRAVATED [None]
